FAERS Safety Report 8447947-7 (Version None)
Quarter: 2012Q2

REPORT INFORMATION
  Report Type: 
  Country: None (occurrence: None)
  Receive Date: 20120619
  Receipt Date: 20120615
  Transmission Date: 20120825
  Serious: Yes (Other)
  Sender: FDA-Public Use
  Company Number: PHEH2012US012082

PATIENT

DRUGS (1)
  1. ZOMETA [Suspect]
     Dosage: 4 MG, EVERY 6 MONTHS

REACTIONS (1)
  - ATRIAL FIBRILLATION [None]
